FAERS Safety Report 8244908-8 (Version None)
Quarter: 2012Q1

REPORT INFORMATION
  Report Type: 
  Country: None (occurrence: None)
  Receive Date: 20120329
  Receipt Date: 20110831
  Transmission Date: 20120608
  Serious: No
  Sender: FDA-Public Use
  Company Number: US-MYLANLABS-2011S1018390

PATIENT
  Age: 43 Year
  Sex: Female

DRUGS (3)
  1. FENTANYL-100 [Suspect]
     Indication: BACK PAIN
     Dosage: CHANGED Q48H
     Route: 062
     Dates: start: 20110201
  2. OXYMORPHONE [Concomitant]
     Indication: BREAKTHROUGH PAIN
     Dosage: 1-2 PER DAY
     Route: 048
  3. TRAZODONE HCL [Concomitant]
     Indication: INSOMNIA
     Route: 048

REACTIONS (6)
  - HEADACHE [None]
  - CHILLS [None]
  - SOMNOLENCE [None]
  - HYPERHIDROSIS [None]
  - DISORIENTATION [None]
  - PALPITATIONS [None]
